FAERS Safety Report 11945325 (Version 1)
Quarter: 2016Q1

REPORT INFORMATION
  Report Type: Spontaneous
  Country: US (occurrence: US)
  Receive Date: 20160125
  Receipt Date: 20160125
  Transmission Date: 20160526
  Serious: Yes (Other)
  Sender: FDA-Public Use
  Company Number: US-PFIZER INC-2016018927

PATIENT
  Age: 11 Year
  Sex: Male
  Weight: 27.66 kg

DRUGS (2)
  1. GENOTROPIN [Suspect]
     Active Substance: SOMATROPIN
     Dosage: UNK
  2. GENOTROPIN [Suspect]
     Active Substance: SOMATROPIN
     Dosage: UNK

REACTIONS (5)
  - Eye infection [Unknown]
  - Incorrect dose administered [Unknown]
  - Product quality issue [Unknown]
  - Ocular hyperaemia [Unknown]
  - Eye oedema [Unknown]

NARRATIVE: CASE EVENT DATE: 20160107
